FAERS Safety Report 6988453-6 (Version None)
Quarter: 2010Q3

REPORT INFORMATION
  Report Type: 
  Country: None (occurrence: None)
  Receive Date: 20100916
  Receipt Date: 20100907
  Transmission Date: 20110219
  Serious: Yes (Hospitalization, Other)
  Sender: FDA-Public Use
  Company Number: US-AMGEN-QUU415264

PATIENT
  Sex: Female

DRUGS (2)
  1. NPLATE [Suspect]
     Indication: IDIOPATHIC THROMBOCYTOPENIC PURPURA
     Dates: start: 20090824
  2. RITUXIMAB [Concomitant]
     Dates: start: 20090127

REACTIONS (5)
  - DEEP VEIN THROMBOSIS [None]
  - HIP ARTHROPLASTY [None]
  - MYELODYSPLASTIC SYNDROME [None]
  - PLATELET COUNT INCREASED [None]
  - THROMBOCYTOPENIA [None]
